FAERS Safety Report 15386333 (Version 1)
Quarter: 2018Q3

REPORT INFORMATION
  Report Type: Spontaneous
  Country: US (occurrence: US)
  Receive Date: 20180907
  Receipt Date: 20180907
  Transmission Date: 20181010
  Serious: Yes (Disabling)
  Sender: FDA-Public Use
  Company Number: None

PATIENT
  Age: 66 Year
  Sex: Male
  Weight: 81 kg

DRUGS (2)
  1. NEXIUM [Concomitant]
     Active Substance: ESOMEPRAZOLE MAGNESIUM
  2. MELOXICAM 15MG TAB ZYD [Suspect]
     Active Substance: MELOXICAM
     Indication: PAIN IN EXTREMITY
     Dosage: ?          QUANTITY:45 TABLET(S);?
     Route: 048
     Dates: start: 20180906, end: 20180907

REACTIONS (3)
  - Pruritus [None]
  - Nausea [None]
  - Abdominal pain upper [None]

NARRATIVE: CASE EVENT DATE: 20180907
